FAERS Safety Report 5796350-7 (Version None)
Quarter: 2008Q2

REPORT INFORMATION
  Report Type: 
  Country: None (occurrence: None)
  Receive Date: 20080618
  Receipt Date: 20070820
  Transmission Date: 20081010
  Serious: Yes (Other)
  Sender: FDA-Public Use
  Company Number: 200714810US

PATIENT
  Age: 78 Year
  Sex: Female

DRUGS (12)
  1. LANTUS [Suspect]
     Indication: TYPE 2 DIABETES MELLITUS
     Dosage: 30 U QD INJ
     Dates: start: 20070622, end: 20070701
  2. LANTUS [Suspect]
     Indication: TYPE 2 DIABETES MELLITUS
     Dosage: 45 U QD INJ
     Dates: start: 20070702
  3. LANTUS [Suspect]
     Indication: TYPE 2 DIABETES MELLITUS
     Dosage: 30 U QPM INJ
  4. OPTICLIK [Suspect]
     Indication: TYPE 2 DIABETES MELLITUS
     Dates: start: 20070628
  5. QUINAPRIL [Concomitant]
  6. THEOPHYLLINE [Concomitant]
  7. CLOPIDOGREL (PLAVIX /01220701/) [Concomitant]
  8. SPIRAMYCIN (SPIRA) [Concomitant]
  9. PREDNISONE TAB [Concomitant]
  10. FLUTICASONE PROPIONATE, SALMETEROL XINAFOATE (ADVAIR) [Concomitant]
  11. FUROSEMIDE [Concomitant]
  12. DILTIAZEM HYDROCHLORIDE [Concomitant]

REACTIONS (2)
  - BLOOD GLUCOSE DECREASED [None]
  - HYPERGLYCAEMIA [None]
